FAERS Safety Report 7995642-0 (Version None)
Quarter: 2011Q4

REPORT INFORMATION
  Report Type: 
  Country: None (occurrence: None)
  Receive Date: 20111220
  Receipt Date: 20111026
  Transmission Date: 20120403
  Serious: Yes (Other)
  Sender: FDA-Public Use
  Company Number: US-PURDUE-USA-2011-0079867

PATIENT
  Sex: Male

DRUGS (1)
  1. OXYCONTIN [Suspect]
     Indication: PAIN
     Dosage: UNK

REACTIONS (5)
  - DRUG DEPENDENCE [None]
  - SUICIDAL IDEATION [None]
  - PAIN [None]
  - DRUG WITHDRAWAL SYNDROME [None]
  - DEPRESSION [None]
